FAERS Safety Report 9809159 (Version 3)
Quarter: 2014Q1

REPORT INFORMATION
  Report Type: Report from Study
  Country: US (occurrence: US)
  Receive Date: 20140110
  Receipt Date: 20140130
  Transmission Date: 20141002
  Serious: Yes (Hospitalization)
  Sender: FDA-Public Use
  Company Number: PHEH2013US025637

PATIENT
  Age: 34 Year
  Sex: Female
  Weight: 90.7 kg

DRUGS (6)
  1. GILENYA [Suspect]
     Indication: MULTIPLE SCLEROSIS
     Dosage: 0.5 MG, QD
     Route: 048
     Dates: start: 20131114
  2. SERTRALINE [Suspect]
  3. GABAPENTIN [Concomitant]
     Dosage: 200 MG, QHS
     Route: 048
  4. DITROPAN [Concomitant]
     Dosage: 5 MG, QD
     Route: 048
  5. CYCLOBENZAPRINE [Concomitant]
     Dosage: 5 MG, TID
     Route: 048
  6. ESCITALOPRAM [Concomitant]
     Dosage: 10 MG, BID
     Route: 048

REACTIONS (4)
  - Optic neuritis [Recovering/Resolving]
  - Vision blurred [Recovering/Resolving]
  - Fatigue [Recovering/Resolving]
  - Headache [Not Recovered/Not Resolved]
